FAERS Safety Report 6394596-0 (Version None)
Quarter: 2009Q4

REPORT INFORMATION
  Report Type: 
  Country: None (occurrence: None)
  Receive Date: 20091009
  Receipt Date: 20090929
  Transmission Date: 20100525
  Serious: Yes (Other)
  Sender: FDA-Public Use
  Company Number: FR-JNJFOC-20091000622

PATIENT
  Age: 51 Year
  Sex: Female

DRUGS (3)
  1. PREZISTA [Suspect]
     Indication: HIV INFECTION
     Route: 048
  2. NORVIR [Suspect]
     Indication: HIV INFECTION
     Route: 065
  3. CELSENTRI [Concomitant]
     Indication: HIV INFECTION
     Route: 065

REACTIONS (2)
  - RASH MACULO-PAPULAR [None]
  - SKIN EXFOLIATION [None]
